FAERS Safety Report 7601856-1 (Version None)
Quarter: 2011Q3

REPORT INFORMATION
  Report Type: 
  Country: None (occurrence: None)
  Receive Date: 20110711
  Receipt Date: 20110706
  Transmission Date: 20111222
  Serious: No
  Sender: FDA-Public Use
  Company Number: US-PFIZER INC-2011131821

PATIENT
  Sex: Female
  Weight: 68 kg

DRUGS (3)
  1. CYCLOSPORINE [Concomitant]
     Dosage: UNK
  2. IBUPROFEN (ADVIL) [Suspect]
     Dosage: 1-4 DAILY
     Route: 048
     Dates: start: 20110501
  3. IBUPROFEN (ADVIL) [Suspect]
     Indication: OSTEOARTHRITIS
     Dosage: 1-4 DAILY
     Route: 048
     Dates: start: 20060101, end: 20110501

REACTIONS (1)
  - ABDOMINAL DISCOMFORT [None]
